FAERS Safety Report 4764069-7 (Version None)
Quarter: 2005Q3

REPORT INFORMATION
  Report Type: 
  Country: None (occurrence: None)
  Receive Date: 20050908
  Receipt Date: 20050829
  Transmission Date: 20060218
  Serious: Yes (Hospitalization)
  Sender: FDA-Public Use
  Company Number: AU-MERCK-0508AUS00157

PATIENT
  Sex: Female

DRUGS (6)
  1. VIOXX [Suspect]
     Route: 048
     Dates: start: 20041017, end: 20041017
  2. HYDROXYUREA [Suspect]
     Indication: ESSENTIAL THROMBOCYTHAEMIA
     Route: 048
     Dates: start: 20000501
  3. HYDROXYUREA [Suspect]
     Route: 048
     Dates: start: 20041017, end: 20041017
  4. LAMOTRIGINE [Suspect]
     Route: 048
  5. LAMOTRIGINE [Suspect]
     Route: 048
     Dates: start: 20041017, end: 20041017
  6. TEMAZEPAM [Suspect]
     Route: 065
     Dates: start: 20041017, end: 20041017

REACTIONS (2)
  - OVERDOSE [None]
  - RESPIRATORY DISTRESS [None]
